FAERS Safety Report 16396809 (Version 1)
Quarter: 2019Q2

REPORT INFORMATION
  Report Type: Spontaneous
  Country: US (occurrence: US)
  Receive Date: 20190606
  Receipt Date: 20190606
  Transmission Date: 20190711
  Serious: No
  Sender: FDA-Public Use
  Company Number: US-GLAXOSMITHKLINE-US2019AMR085947

PATIENT
  Sex: Female

DRUGS (1)
  1. NUCALA [Suspect]
     Active Substance: MEPOLIZUMAB
     Indication: PRODUCT USED FOR UNKNOWN INDICATION
     Dosage: SINGLE DOSE X 4 MONTHS
     Route: 058

REACTIONS (5)
  - Back pain [Unknown]
  - Weight increased [Unknown]
  - Migraine with aura [Unknown]
  - Headache [Unknown]
  - Visual impairment [Unknown]
